FAERS Safety Report 15462528 (Version 2)
Quarter: 2018Q4

REPORT INFORMATION
  Report Type: Spontaneous
  Country: JP (occurrence: JP)
  Receive Date: 20181004
  Receipt Date: 20181105
  Transmission Date: 20190204
  Serious: Yes (Hospitalization)
  Sender: FDA-Public Use
  Company Number: JP-ORION CORPORATION ORION PHARMA-ENT 2018-0100

PATIENT
  Age: 82 Year
  Sex: Female

DRUGS (5)
  1. FP [Concomitant]
     Active Substance: SELEGILINE HYDROCHLORIDE
     Route: 065
  2. SYMMETREL [Concomitant]
     Active Substance: AMANTADINE HYDROCHLORIDE
     Route: 065
  3. BI-SIFROL [Concomitant]
     Active Substance: PRAMIPEXOLE
     Indication: PARKINSON^S DISEASE
     Route: 065
  4. MENESIT [Concomitant]
     Active Substance: CARBIDOPA\LEVODOPA
     Indication: PARKINSON^S DISEASE
     Route: 065
  5. COMTAN [Suspect]
     Active Substance: ENTACAPONE
     Indication: PARKINSON^S DISEASE
     Route: 048

REACTIONS (11)
  - Intentional product misuse [Unknown]
  - Hallucination, visual [Recovered/Resolved]
  - Pyrexia [Unknown]
  - Neuroleptic malignant syndrome [Unknown]
  - Bedridden [Unknown]
  - Parkinson^s disease [Unknown]
  - C-reactive protein increased [Unknown]
  - Lordosis [Unknown]
  - Dysphonia [Unknown]
  - Fall [Unknown]
  - Decubitus ulcer [Unknown]
